FAERS Safety Report 9580786 (Version 4)
Quarter: 2014Q1

REPORT INFORMATION
  Report Type: Spontaneous
  Country: FR (occurrence: FR)
  Receive Date: 20131002
  Receipt Date: 20140123
  Transmission Date: 20141002
  Serious: Yes (Hospitalization)
  Sender: FDA-Public Use
  Company Number: FR-TEVA-434319ISR

PATIENT
  Age: 20 Year
  Sex: Female

DRUGS (25)
  1. PREDNISONE [Suspect]
     Indication: ACUTE LYMPHOCYTIC LEUKAEMIA
     Dosage: 48 MILLIGRAM DAILY;
     Route: 048
     Dates: start: 20130624
  2. VINCRISTINE [Suspect]
     Indication: ACUTE LYMPHOCYTIC LEUKAEMIA
     Route: 042
     Dates: start: 20130701
  3. VINCRISTINE [Suspect]
     Route: 042
     Dates: start: 20130708
  4. VINCRISTINE [Suspect]
     Route: 042
     Dates: start: 20130715
  5. VINCRISTINE [Suspect]
     Route: 042
     Dates: start: 20130723
  6. LUTENYL [Suspect]
     Dosage: 1 DOSAGE FORMS DAILY;
     Route: 048
     Dates: start: 20130625
  7. ACLOTINE 10 IU/ML [Suspect]
     Dosage: 1000 IU (INTERNATIONAL UNIT) DAILY;
     Route: 042
     Dates: start: 20130703
  8. BACTRIM FORTE [Suspect]
     Indication: ACUTE LYMPHOCYTIC LEUKAEMIA
     Dosage: 800 MILLIGRAM DAILY;
     Route: 048
     Dates: start: 20130625, end: 20130718
  9. CERUBIDINE 20 MG [Suspect]
     Indication: ACUTE LYMPHOCYTIC LEUKAEMIA
     Route: 042
     Dates: start: 20130701
  10. CERUBIDINE 20 MG [Suspect]
     Route: 042
     Dates: start: 20130708
  11. CERUBIDINE 20 MG [Suspect]
     Route: 042
     Dates: start: 20130715
  12. CERUBIDINE 20 MG [Suspect]
     Route: 042
     Dates: start: 20130723
  13. INEXIUM [Suspect]
     Dosage: 20 MILLIGRAM DAILY;
     Dates: start: 20130625
  14. L ASPARAGINASE [Suspect]
     Indication: ACUTE LYMPHOCYTIC LEUKAEMIA
     Route: 042
     Dates: start: 20130701
  15. L ASPARAGINASE [Suspect]
     Route: 042
     Dates: start: 20130703
  16. L ASPARAGINASE [Suspect]
     Route: 042
     Dates: start: 20130705
  17. L ASPARAGINASE [Suspect]
     Route: 042
     Dates: start: 20130708
  18. L ASPARAGINASE [Suspect]
     Route: 042
     Dates: start: 20130710
  19. L ASPARAGINASE [Suspect]
     Route: 042
     Dates: start: 20130723
  20. VITAMINE K 1 [Suspect]
     Route: 065
     Dates: start: 20130703
  21. ZELITREX [Suspect]
     Indication: INFECTION
     Dosage: 1000 MILLIGRAM DAILY;
     Route: 048
     Dates: start: 20130625
  22. ZOPHREN [Suspect]
     Indication: PRODUCT USED FOR UNKNOWN INDICATION
     Dosage: 18 MILLIGRAM DAILY;
     Route: 065
     Dates: start: 20130701
  23. ENDOXAN [Suspect]
     Indication: PRODUCT USED FOR UNKNOWN INDICATION
     Route: 065
     Dates: start: 20130715
  24. MESNA EG [Suspect]
     Indication: PRODUCT USED FOR UNKNOWN INDICATION
     Route: 041
     Dates: start: 20130715
  25. ACUPAN [Suspect]
     Indication: PAIN
     Dosage: 6 DOSAGE FORMS DAILY;
     Dates: start: 20130625

REACTIONS (2)
  - Cholestasis [Recovered/Resolved]
  - Hepatocellular injury [Recovered/Resolved]
